FAERS Safety Report 9465279 (Version 1)
Quarter: 2013Q3

REPORT INFORMATION
  Report Type: Spontaneous
  Country: JP (occurrence: JP)
  Receive Date: 20130819
  Receipt Date: 20130819
  Transmission Date: 20140515
  Serious: Yes (Other)
  Sender: FDA-Public Use
  Company Number: PHHY2013JP087053

PATIENT
  Age: 24 Year
  Sex: Female

DRUGS (1)
  1. AMOXICILLIN [Suspect]
     Indication: SECONDARY SYPHILIS
     Dosage: 1500 MG
     Route: 048

REACTIONS (6)
  - Retinal vascular disorder [Recovered/Resolved]
  - Vitreous haemorrhage [Recovered/Resolved]
  - Eye inflammation [Recovered/Resolved]
  - Retinal neovascularisation [Recovered/Resolved]
  - Condition aggravated [Recovering/Resolving]
  - Jarisch-Herxheimer reaction [Recovered/Resolved]
